FAERS Safety Report 13840483 (Version 2)
Quarter: 2017Q3

REPORT INFORMATION
  Report Type: Spontaneous
  Country: CN (occurrence: CN)
  Receive Date: 20170807
  Receipt Date: 20170822
  Transmission Date: 20171127
  Serious: Yes (Other)
  Sender: FDA-Public Use
  Company Number: CN-GILEAD-2017-0286734

PATIENT
  Age: 44 Year
  Sex: Male

DRUGS (5)
  1. VIREAD [Suspect]
     Active Substance: TENOFOVIR DISOPROXIL FUMARATE
     Indication: HEPATITIS B
     Dosage: 300 MG, QD
     Route: 048
     Dates: start: 201706
  2. HEPSERA [Suspect]
     Active Substance: ADEFOVIR DIPIVOXIL
     Indication: HEPATITIS B
     Dosage: 1 DF, QD, TABLET
     Route: 065
  3. ENTECAVIR TABLET [Suspect]
     Active Substance: ENTECAVIR
     Indication: HEPATITIS B
     Dosage: 1 DF, QD, TABLET
     Route: 048
     Dates: start: 201603, end: 201603
  4. INTERFERON [Suspect]
     Active Substance: INTERFERON
     Indication: HEPATITIS B
     Dosage: UNK
     Route: 065
     Dates: start: 201603
  5. HEPTODIN [Suspect]
     Active Substance: LAMIVUDINE
     Indication: HEPATITIS B
     Dosage: 1 DF, QD, TABLET, USED ABOUT 5-6 YEARS AGO
     Route: 048

REACTIONS (6)
  - Product storage error [Unknown]
  - Drug resistance [Unknown]
  - Drug administration error [Unknown]
  - Drug ineffective [Unknown]
  - Hyperthyroidism [Unknown]
  - Blood uric acid increased [Unknown]

NARRATIVE: CASE EVENT DATE: 201706
